FAERS Safety Report 8808350 (Version 1)
Quarter: 2012Q4

REPORT INFORMATION
  Report Type: Spontaneous
  Country: US (occurrence: None)
  Receive Date: 20120920
  Receipt Date: 20120920
  Transmission Date: 20130627
  Serious: No
  Sender: FDA-Public Use
  Company Number: None

PATIENT
  Sex: Female

DRUGS (2)
  1. ARIXTRA [Suspect]
     Indication: MALIGNANT BREAST NEOPLASM
     Route: 058
     Dates: start: 20120206, end: 20120912
  2. FEMARA [Suspect]
     Route: 048
     Dates: start: 20120706, end: 20120918

REACTIONS (2)
  - Oedema peripheral [None]
  - Abdominal distension [None]
